FAERS Safety Report 10120712 (Version 2)
Quarter: 2014Q2

REPORT INFORMATION
  Report Type: Report from Study
  Country: BR (occurrence: BR)
  Receive Date: 20140425
  Receipt Date: 20140429
  Transmission Date: 20141212
  Serious: Yes (Death)
  Sender: FDA-Public Use
  Company Number: BR-ACTELION-A-CH2014-98097

PATIENT
  Age: 23 Year
  Sex: Female

DRUGS (7)
  1. TRACLEER [Suspect]
     Indication: PULMONARY ARTERIAL HYPERTENSION
     Dosage: 125 MG, BID
     Route: 048
  2. TRACLEER [Suspect]
     Dosage: UNK
     Route: 048
     Dates: start: 2011
  3. DIGOXIN [Concomitant]
  4. FUROSEMIDE [Concomitant]
  5. SPIRONOLACTONE [Concomitant]
  6. WARFARIN [Concomitant]
  7. SILDENAFIL [Concomitant]

REACTIONS (1)
  - Cardiac arrest [Fatal]
